FAERS Safety Report 22748462 (Version 5)
Quarter: 2023Q4

REPORT INFORMATION
  Report Type: Report from Study
  Country: ES (occurrence: None)
  Receive Date: 20230725
  Receipt Date: 20231123
  Transmission Date: 20240110
  Serious: Yes (Hospitalization, Other)
  Sender: FDA-Public Use
  Company Number: 2023A162908

PATIENT
  Age: 50 Year
  Sex: Male
  Weight: 71.6 kg

DRUGS (11)
  1. DURVALUMAB [Suspect]
     Active Substance: DURVALUMAB
     Indication: Pancreatic carcinoma metastatic
     Dosage: 1500.0MG ONCE/SINGLE ADMINISTRATION
     Route: 042
     Dates: start: 20230616, end: 20230616
  2. DURVALUMAB [Suspect]
     Active Substance: DURVALUMAB
     Indication: Pancreatic carcinoma metastatic
     Dosage: 1500.0MG ONCE/SINGLE ADMINISTRATION
     Route: 042
     Dates: start: 20230710, end: 20230710
  3. INVESTIGATIONAL PRODUCT [Suspect]
     Active Substance: INVESTIGATIONAL PRODUCT
     Indication: Pancreatic carcinoma metastatic
     Dosage: 1500.0MG ONCE/SINGLE ADMINISTRATION
     Route: 042
     Dates: start: 20230616, end: 20230616
  4. INVESTIGATIONAL PRODUCT [Suspect]
     Active Substance: INVESTIGATIONAL PRODUCT
     Indication: Pancreatic carcinoma metastatic
     Dosage: 1500.0MG ONCE/SINGLE ADMINISTRATION
     Route: 042
     Dates: start: 20230730, end: 20230730
  5. GEMCITABINE [Concomitant]
     Active Substance: GEMCITABINE
     Indication: Pancreatic carcinoma metastatic
     Dosage: 1000.0MG/M2 ONCE/SINGLE ADMINISTRATION
     Route: 042
     Dates: start: 20230616, end: 20230630
  6. PACLITAXEL [Concomitant]
     Active Substance: PACLITAXEL
     Indication: Pancreatic carcinoma metastatic
     Dosage: 125.0MG/M2 ONCE/SINGLE ADMINISTRATION
     Route: 042
     Dates: start: 20230616, end: 20230630
  7. CARVEDILOL [Concomitant]
     Active Substance: CARVEDILOL
     Indication: Hypertension
     Route: 048
     Dates: start: 20230526
  8. ACETAMINOPHEN [Concomitant]
     Active Substance: ACETAMINOPHEN
     Indication: Pain management
     Route: 048
     Dates: start: 20220528
  9. PANCRELIPASE [Concomitant]
     Active Substance: PANCRELIPASE
     Indication: Pancreatic failure
     Dosage: 35000 IU EVERY FOUR HOURS
     Route: 048
     Dates: start: 20230526
  10. PANCRELIPASE [Concomitant]
     Active Substance: PANCRELIPASE
     Indication: Pancreatic failure
     Dosage: 25000 IU EVERY FOUR HOURS
     Route: 048
     Dates: start: 20230526
  11. ACETAMINOPHEN\TRAMADOL [Concomitant]
     Active Substance: ACETAMINOPHEN\TRAMADOL
     Indication: Pain management
     Route: 048
     Dates: start: 20230614

REACTIONS (1)
  - Immune-mediated hepatitis [Not Recovered/Not Resolved]

NARRATIVE: CASE EVENT DATE: 20230711
